FAERS Safety Report 15736782 (Version 1)
Quarter: 2018Q4

REPORT INFORMATION
  Report Type: Spontaneous
  Country: US (occurrence: US)
  Receive Date: 20181218
  Receipt Date: 20181218
  Transmission Date: 20190205
  Serious: No
  Sender: FDA-Public Use
  Company Number: US-PERRIGO-18US010354

PATIENT
  Age: 55 Year
  Sex: Male
  Weight: 65.76 kg

DRUGS (1)
  1. BACITRACIN. [Suspect]
     Active Substance: BACITRACIN
     Indication: EYE INFLAMMATION
     Dosage: 1 APPLICATION, NIGHTLY
     Route: 047
     Dates: start: 20180924, end: 20180927

REACTIONS (3)
  - Eye pain [Recovered/Resolved]
  - Foreign body sensation in eyes [Recovered/Resolved]
  - Off label use [None]

NARRATIVE: CASE EVENT DATE: 20180924
